FAERS Safety Report 13967905 (Version 1)
Quarter: 2017Q3

REPORT INFORMATION
  Report Type: Spontaneous
  Country: AT (occurrence: AT)
  Receive Date: 20170914
  Receipt Date: 20170914
  Transmission Date: 20171128
  Serious: Yes (Hospitalization)
  Sender: FDA-Public Use
  Company Number: AT-INVENTIA-000173

PATIENT
  Age: 78 Year
  Sex: Female

DRUGS (2)
  1. INSULIN ASPART [Suspect]
     Active Substance: INSULIN ASPART
     Indication: PRODUCT USED FOR UNKNOWN INDICATION
     Dosage: B.I.D. (16-0-12 IU)
  2. METFORMIN [Suspect]
     Active Substance: METFORMIN HYDROCHLORIDE
     Indication: PRODUCT USED FOR UNKNOWN INDICATION
     Dosage: 850 MG B.I.D.

REACTIONS (6)
  - Chronic kidney disease [Unknown]
  - Somnolence [Unknown]
  - Hypothermia [Unknown]
  - Hypotension [Unknown]
  - Lactic acidosis [Unknown]
  - Ketoacidosis [Unknown]
